FAERS Safety Report 10412294 (Version 1)
Quarter: 2014Q2

REPORT INFORMATION
  Report Type: Spontaneous
  Country: US (occurrence: None)
  Receive Date: 20140604
  Receipt Date: 20140604
  Transmission Date: 20141212
  Serious: Yes (Other)
  Sender: FDA-Public Use
  Company Number: 20100923CINRY1615

PATIENT
  Sex: Female

DRUGS (8)
  1. CINRYZE [Suspect]
     Indication: HEREDITARY ANGIOEDEMA
     Dosage: (1000 UNIT, 2 IN 1 WK),INTRAVENOUS
     Route: 042
  2. CINRYZE [Suspect]
     Indication: PROPHYLAXIS
     Dosage: (1000 UNIT, 2 IN 1 WK),INTRAVENOUS
     Route: 042
  3. ATIVAN(LORAZEPAM) [Concomitant]
  4. NORTRIPTYLINE(NORTRIPTYLINE) [Concomitant]
  5. SUCRALFATE(SUCRALFATE) [Concomitant]
  6. LEVSIN(HYOSCYAMINE SULFATE) [Concomitant]
  7. OMEPRAZOLE(OMEPRAZOLE) [Concomitant]
  8. ATARAX(HYDROXYZINE) [Concomitant]

REACTIONS (4)
  - Hereditary angioedema [None]
  - Local swelling [None]
  - Abdominal pain upper [None]
  - Abdominal distension [None]
